FAERS Safety Report 23925314 (Version 1)
Quarter: 2024Q2

REPORT INFORMATION
  Report Type: Spontaneous
  Country: US (occurrence: US)
  Receive Date: 20240531
  Receipt Date: 20240531
  Transmission Date: 20240716
  Serious: No
  Sender: FDA-Public Use
  Company Number: US-BIOVITRUM-2024-US-007929

PATIENT
  Age: 69 Year
  Sex: Female

DRUGS (1)
  1. KINERET [Suspect]
     Active Substance: ANAKINRA
     Indication: Autoimmune thyroiditis
     Dosage: DAILY
     Route: 058
     Dates: start: 20230901

REACTIONS (5)
  - Drug hypersensitivity [Unknown]
  - Swelling face [Unknown]
  - Erythema [Unknown]
  - Off label use [Recovered/Resolved]
  - Memory impairment [Unknown]

NARRATIVE: CASE EVENT DATE: 20230901
